FAERS Safety Report 23183045 (Version 3)
Quarter: 2024Q1

REPORT INFORMATION
  Report Type: Spontaneous
  Country: US (occurrence: US)
  Receive Date: 20231114
  Receipt Date: 20240308
  Transmission Date: 20240409
  Serious: No
  Sender: FDA-Public Use
  Company Number: US-SA-SAC20231106001675

PATIENT
  Sex: Male
  Weight: 113 kg

DRUGS (1)
  1. DUPIXENT [Suspect]
     Active Substance: DUPILUMAB
     Indication: Dermatitis atopic
     Dosage: 300 MG, QOW
     Route: 058

REACTIONS (6)
  - Dry skin [Recovering/Resolving]
  - Eyelid skin dryness [Unknown]
  - Eye infection [Unknown]
  - Meibomian gland dysfunction [Unknown]
  - Erythema [Recovering/Resolving]
  - Dry eye [Unknown]
